FAERS Safety Report 9539199 (Version 1)
Quarter: 2013Q2

REPORT INFORMATION
  Report Type: Spontaneous
  Country: US (occurrence: None)
  Receive Date: 20130517
  Receipt Date: 20130517
  Transmission Date: 20140414
  Serious: Yes (Other)
  Sender: FDA-Public Use
  Company Number: 1000042159

PATIENT
  Sex: Female

DRUGS (5)
  1. VIIBRYD [Suspect]
     Route: 048
     Dates: end: 201207
  2. CYMBALTA [Concomitant]
  3. ANTABUSE (DISULFIRAM) (DISULFIRAM) [Concomitant]
  4. HYZAAR (HYZAAR) (HYZAAR) [Concomitant]
  5. SIMVASTATIN (SIMVASTATIN) (SIMVASTATIN) [Concomitant]

REACTIONS (1)
  - Serotonin syndrome [None]
